FAERS Safety Report 17641583 (Version 2)
Quarter: 2020Q2

REPORT INFORMATION
  Report Type: Spontaneous
  Country: US (occurrence: US)
  Receive Date: 20200408
  Receipt Date: 20200508
  Transmission Date: 20200713
  Serious: No
  Sender: FDA-Public Use
  Company Number: US-GLAXOSMITHKLINE-US2020060615

PATIENT
  Age: 75 Year
  Sex: Female

DRUGS (3)
  1. ABREVA [Suspect]
     Active Substance: DOCOSANOL
     Indication: ORAL HERPES
     Dosage: UNK
     Dates: start: 20200404, end: 20200404
  2. ABREVA [Suspect]
     Active Substance: DOCOSANOL
     Dosage: UNK
     Dates: start: 20200404, end: 20200404
  3. ABREVA [Suspect]
     Active Substance: DOCOSANOL
     Dosage: UNK
     Dates: start: 20200411, end: 20200411

REACTIONS (6)
  - Product administered at inappropriate site [Unknown]
  - Application site erythema [Recovered/Resolved]
  - Application site reaction [Recovered/Resolved]
  - Application site pruritus [Recovered/Resolved]
  - Application site swelling [Recovered/Resolved]
  - Application site pain [Recovered/Resolved]
